FAERS Safety Report 9397880 (Version 1)
Quarter: 2013Q3

REPORT INFORMATION
  Report Type: Spontaneous
  Country: US (occurrence: US)
  Receive Date: 20130712
  Receipt Date: 20130712
  Transmission Date: 20140515
  Serious: No
  Sender: FDA-Public Use
  Company Number: US-BAYER-2013-085101

PATIENT
  Age: 44 Year
  Sex: Male

DRUGS (2)
  1. ALEVE CAPLET [Suspect]
     Indication: HEADACHE
     Dosage: UNK
  2. ALEVE CAPLET [Suspect]
     Indication: MYALGIA

REACTIONS (1)
  - Drug ineffective [None]
